FAERS Safety Report 5901081-6 (Version None)
Quarter: 2008Q3

REPORT INFORMATION
  Report Type: 
  Country: None (occurrence: None)
  Receive Date: 20080929
  Receipt Date: 20070828
  Transmission Date: 20090109
  Serious: No
  Sender: FDA-Public Use
  Company Number: US-BAYER-200712776BWH

PATIENT
  Age: 79 Year
  Sex: Female

DRUGS (4)
  1. AVELOX [Suspect]
     Indication: DRUG USE FOR UNKNOWN INDICATION
     Route: 042
  2. AVELOX [Suspect]
     Route: 042
  3. AVELOX [Suspect]
     Route: 042
  4. AVELOX [Suspect]
     Route: 042

REACTIONS (4)
  - SWELLING [None]
  - URTICARIA [None]
  - VESSEL PUNCTURE SITE PRURITUS [None]
  - VESSEL PUNCTURE SITE REACTION [None]
